FAERS Safety Report 6174953-8 (Version None)
Quarter: 2009Q2

REPORT INFORMATION
  Report Type: 
  Country: None (occurrence: None)
  Receive Date: 20090430
  Receipt Date: 20081022
  Transmission Date: 20091009
  Serious: No
  Sender: FDA-Public Use
  Company Number: US-ASTRAZENECA-2008UW23552

PATIENT
  Sex: Female

DRUGS (6)
  1. NEXIUM [Suspect]
     Indication: OROPHARYNGEAL PAIN
     Route: 048
  2. NEXIUM [Suspect]
     Indication: THROAT IRRITATION
     Route: 048
  3. NEXIUM [Suspect]
     Indication: DYSPHONIA
     Route: 048
  4. NEXIUM [Suspect]
     Route: 048
     Dates: start: 20081001
  5. NEXIUM [Suspect]
     Route: 048
     Dates: start: 20081001
  6. NEXIUM [Suspect]
     Route: 048
     Dates: start: 20081001

REACTIONS (2)
  - CONDITION AGGRAVATED [None]
  - DRUG INEFFECTIVE [None]
